FAERS Safety Report 4948332-2 (Version None)
Quarter: 2006Q1

REPORT INFORMATION
  Report Type: 
  Country: None (occurrence: None)
  Receive Date: 20060127
  Receipt Date: 20050217
  Transmission Date: 20060701
  Serious: Yes (Hospitalization)
  Sender: FDA-Public Use
  Company Number: 05-02-0229

PATIENT
  Age: 59 Year
  Sex: Female

DRUGS (2)
  1. CLOZAPINE [Suspect]
     Indication: ANXIETY
     Dosage: 125-300MG QD, ORAL
     Route: 048
     Dates: start: 20011001
  2. CLOZAPINE [Suspect]
     Indication: DEPRESSION
     Dosage: 125-300MG QD, ORAL
     Route: 048
     Dates: start: 20011001

REACTIONS (1)
  - CORONARY ARTERY SURGERY [None]
